FAERS Safety Report 17955068 (Version 1)
Quarter: 2020Q2

REPORT INFORMATION
  Report Type: Spontaneous
  Country: GB (occurrence: GB)
  Receive Date: 20200629
  Receipt Date: 20200629
  Transmission Date: 20200714
  Serious: Yes (Hospitalization, Other)
  Sender: FDA-Public Use
  Company Number: GB-BRISTOL-MYERS SQUIBB COMPANY-BMS-2020-049290

PATIENT
  Age: 17 Year
  Sex: Female

DRUGS (1)
  1. KENALOG-40 [Suspect]
     Active Substance: TRIAMCINOLONE ACETONIDE
     Indication: COCCYDYNIA
     Dosage: 1 MILLILITER

REACTIONS (2)
  - Intentional product use issue [Unknown]
  - Spinal cord infarction [Not Recovered/Not Resolved]
